FAERS Safety Report 5600841-9 (Version None)
Quarter: 2008Q1

REPORT INFORMATION
  Report Type: 
  Country: None (occurrence: None)
  Receive Date: 20080124
  Receipt Date: 20080117
  Transmission Date: 20080703
  Serious: Yes (Hospitalization)
  Sender: FDA-Public Use
  Company Number: US-BAYER-200811642NA

PATIENT
  Sex: Female

DRUGS (2)
  1. YAZ [Suspect]
     Route: 048
  2. IBUPROFEN [Concomitant]

REACTIONS (1)
  - PULMONARY EMBOLISM [None]
